FAERS Safety Report 24900665 (Version 2)
Quarter: 2025Q3

REPORT INFORMATION
  Report Type: Spontaneous
  Country: EU (occurrence: EU)
  Receive Date: 20250129
  Receipt Date: 20250809
  Transmission Date: 20251020
  Serious: Yes (Death, Hospitalization, Other)
  Sender: ALEXION PHARMACEUTICALS
  Company Number: EU-ASTRAZENECA-202501EEA020649ES

PATIENT
  Age: 73 Year
  Sex: Female

DRUGS (9)
  1. TEZSPIRE [Suspect]
     Active Substance: TEZEPELUMAB-EKKO
     Indication: Asthma
     Dosage: UNK UNK, QID
     Route: 065
     Dates: start: 202404
  2. TEZSPIRE [Suspect]
     Active Substance: TEZEPELUMAB-EKKO
     Indication: Asthma
  3. CEFTRIAXONE [Concomitant]
     Active Substance: CEFTRIAXONE
     Indication: Antibiotic therapy
     Route: 065
  4. VANCOMYCIN [Concomitant]
     Active Substance: VANCOMYCIN
     Indication: Antibiotic therapy
     Route: 065
  5. VANCOMYCIN [Concomitant]
     Active Substance: VANCOMYCIN
     Route: 065
  6. AMPICILLIN [Concomitant]
     Active Substance: AMPICILLIN
     Indication: Antibiotic therapy
     Route: 065
  7. DEXAMETHASONE [Concomitant]
     Active Substance: DEXAMETHASONE
     Indication: Antibiotic therapy
     Route: 065
  8. MEROPENEM [Concomitant]
     Active Substance: MEROPENEM
     Route: 065
  9. ANIDULAFUNGIN [Concomitant]
     Active Substance: ANIDULAFUNGIN
     Route: 065

REACTIONS (18)
  - Meningitis bacterial [Fatal]
  - Pathogen resistance [Fatal]
  - Headache [Unknown]
  - Vomiting [Unknown]
  - Nausea [Unknown]
  - Photophobia [Unknown]
  - Phonophobia [Unknown]
  - Ear pain [Unknown]
  - Somnolence [Unknown]
  - Bacterial test positive [Unknown]
  - Purulent discharge [Unknown]
  - Pyrexia [Unknown]
  - Multiple organ dysfunction syndrome [Unknown]
  - Blood lactic acid increased [Unknown]
  - Metabolic acidosis [Unknown]
  - Abdominal compartment syndrome [Unknown]
  - Herpes virus infection [Unknown]
  - Haemodynamic instability [Unknown]

NARRATIVE: CASE EVENT DATE: 20250113
